FAERS Safety Report 20056534 (Version 2)
Quarter: 2022Q4

REPORT INFORMATION
  Report Type: Spontaneous
  Country: FR (occurrence: FR)
  Receive Date: 20211111
  Receipt Date: 20221209
  Transmission Date: 20230113
  Serious: Yes (Death)
  Sender: FDA-Public Use
  Company Number: FR-JNJFOC-20211058963

PATIENT
  Age: 62 Year
  Sex: Male

DRUGS (3)
  1. DEXAMETHASONE [Suspect]
     Active Substance: DEXAMETHASONE
     Indication: Plasma cell myeloma
     Dosage: 4 WEEK/CYCLE
     Route: 065
     Dates: end: 20200123
  2. VELCADE [Suspect]
     Active Substance: BORTEZOMIB
     Indication: Plasma cell myeloma
     Dosage: 4 WEEK/CYCLE
     Route: 065
     Dates: end: 20200123
  3. BENDAMUSTINE HYDROCHLORIDE [Suspect]
     Active Substance: BENDAMUSTINE HYDROCHLORIDE
     Indication: Plasma cell myeloma
     Dosage: 2 WEEK/CYCLE
     Route: 065
     Dates: end: 20200123

REACTIONS (4)
  - Plasma cell myeloma [Fatal]
  - Pyrexia [Unknown]
  - Off label use [Unknown]
  - Product use issue [Unknown]
